FAERS Safety Report 23142931 (Version 1)
Quarter: 2023Q4

REPORT INFORMATION
  Report Type: Other
  Country: FR (occurrence: FR)
  Receive Date: 20231103
  Receipt Date: 20231103
  Transmission Date: 20240109
  Serious: Yes (Hospitalization)
  Sender: FDA-Public Use
  Company Number: None

PATIENT

DRUGS (4)
  1. BISOPROLOL [Suspect]
     Active Substance: BISOPROLOL\BISOPROLOL FUMARATE
     Indication: Myocarditis
     Dosage: 2.5 MILLIGRAM, QD
     Route: 048
     Dates: start: 202204, end: 2023
  2. RAMIPRIL [Suspect]
     Active Substance: RAMIPRIL
     Indication: Myocarditis
     Dosage: 1.25 MILLIGRAM, QD
     Route: 048
     Dates: start: 202204, end: 2023
  3. PEGASYS [Suspect]
     Active Substance: PEGINTERFERON ALFA-2A
     Indication: Polycythaemia vera
     Dosage: 1 DOSAGE FORM, EVERY 7 DAYS
     Route: 058
     Dates: start: 2018, end: 202211
  4. FLUINDIONE [Concomitant]
     Active Substance: FLUINDIONE
     Indication: Product used for unknown indication
     Dosage: 0.75 DOSAGE FORM, QD
     Route: 048

REACTIONS (2)
  - Pleural effusion [Recovered/Resolved with Sequelae]
  - Organising pneumonia [Recovered/Resolved with Sequelae]

NARRATIVE: CASE EVENT DATE: 20220801
